FAERS Safety Report 4825965-5 (Version None)
Quarter: 2005Q4

REPORT INFORMATION
  Report Type: 
  Country: None (occurrence: None)
  Receive Date: 20051111
  Receipt Date: 20051103
  Transmission Date: 20060501
  Serious: Yes (Other)
  Sender: FDA-Public Use
  Company Number: IT-ABBOTT-05P-083-0316422-00

PATIENT
  Sex: Male

DRUGS (2)
  1. VECLAM [Suspect]
     Indication: VIRAL PHARYNGITIS
     Route: 048
     Dates: start: 20050426, end: 20050426
  2. CLARITHROMYCIN [Concomitant]
     Indication: HELICOBACTER INFECTION

REACTIONS (2)
  - FACE OEDEMA [None]
  - LARYNGEAL OEDEMA [None]
